FAERS Safety Report 8302327-X (Version None)
Quarter: 2012Q2

REPORT INFORMATION
  Report Type: 
  Country: None (occurrence: None)
  Receive Date: 20120420
  Receipt Date: 20120413
  Transmission Date: 20120825
  Serious: Yes (Disabling)
  Sender: FDA-Public Use
  Company Number: CA-ASTRAZENECA-2012SE23446

PATIENT
  Age: 72 Year
  Sex: Male

DRUGS (7)
  1. LISINOPRIL AND HYDROCHLOROTHIAZIDE [Concomitant]
     Indication: BLOOD PRESSURE ABNORMAL
     Dosage: 20 MG AND 25 MG ONCE DAILY
     Route: 048
  2. CRESTOR [Suspect]
     Route: 048
     Dates: start: 20120301
  3. EZETIMIBE [Concomitant]
     Route: 048
     Dates: start: 20111201
  4. CLOPIDOGREL [Concomitant]
     Route: 048
     Dates: start: 20060101
  5. METOPROLOL TARTRATE [Concomitant]
     Route: 048
  6. CRESTOR [Suspect]
     Indication: BLOOD CHOLESTEROL ABNORMAL
     Route: 048
     Dates: start: 20110101, end: 20111201
  7. TYLENOL W/ CODEINE NO. 3 [Concomitant]
     Indication: PAIN
     Route: 048

REACTIONS (3)
  - PAIN IN EXTREMITY [None]
  - GAIT DISTURBANCE [None]
  - MUSCULOSKELETAL DISORDER [None]
